FAERS Safety Report 5376294-5 (Version None)
Quarter: 2007Q3

REPORT INFORMATION
  Report Type: 
  Country: None (occurrence: None)
  Receive Date: 20070702
  Receipt Date: 20070619
  Transmission Date: 20080115
  Serious: Yes (Other)
  Sender: FDA-Public Use
  Company Number: JP-ROCHE-491390

PATIENT
  Age: 14 Year
  Sex: Male

DRUGS (3)
  1. TAMIFLU [Suspect]
     Route: 048
     Dates: start: 20040108, end: 20040108
  2. ANTOBRON [Concomitant]
     Route: 048
     Dates: start: 20040108
  3. MEDICON [Concomitant]
     Route: 048
     Dates: start: 20040108

REACTIONS (1)
  - ABNORMAL BEHAVIOUR [None]
